FAERS Safety Report 20883972 (Version 3)
Quarter: 2024Q3

REPORT INFORMATION
  Report Type: Spontaneous
  Country: US (occurrence: US)
  Receive Date: 20220527
  Receipt Date: 20240909
  Transmission Date: 20241016
  Serious: Yes (Death, Other)
  Sender: PFIZER
  Company Number: US-PFIZER INC-202200760740

PATIENT
  Age: 67 Year
  Sex: Female
  Weight: 131.09 kg

DRUGS (2)
  1. IBRANCE [Suspect]
     Active Substance: PALBOCICLIB
     Indication: Bone cancer
     Dosage: 125 MG, CYCLIC (DAILY FOR 3 WEEKS AND THEN OFF FOR 1 WEEK)
  2. AROMASIN [Concomitant]
     Active Substance: EXEMESTANE
     Indication: Bone cancer
     Dosage: 25 MG, 1X/DAY
     Dates: start: 202109

REACTIONS (4)
  - Death [Fatal]
  - Off label use [Unknown]
  - Skin discolouration [Not Recovered/Not Resolved]
  - Illness [Unknown]

NARRATIVE: CASE EVENT DATE: 20240802
